FAERS Safety Report 4818305-9 (Version None)
Quarter: 2005Q4

REPORT INFORMATION
  Report Type: 
  Country: None (occurrence: None)
  Receive Date: 20051031
  Receipt Date: 20051031
  Transmission Date: 20060501
  Serious: Yes (Hospitalization)
  Sender: FDA-Public Use
  Company Number: None

PATIENT
  Age: 75 Year
  Sex: Male
  Weight: 87.0906 kg

DRUGS (2)
  1. WARFARIN [Suspect]
     Dosage: 5 MG PO QD
  2. ASPIRIN [Suspect]
     Dosage: 325 MG PO QD
     Route: 048

REACTIONS (3)
  - DIZZINESS [None]
  - FATIGUE [None]
  - UPPER GASTROINTESTINAL HAEMORRHAGE [None]
